FAERS Safety Report 18279365 (Version 3)
Quarter: 2020Q4

REPORT INFORMATION
  Report Type: Spontaneous
  Country: US (occurrence: US)
  Receive Date: 20200917
  Receipt Date: 20201222
  Transmission Date: 20210113
  Serious: Yes (Life-Threatening, Other)
  Sender: FDA-Public Use
  Company Number: US-CHIESI-2020CHF04038

PATIENT
  Age: 61 Year
  Sex: Male
  Weight: 89 kg

DRUGS (16)
  1. FERRIPROX [Suspect]
     Active Substance: DEFERIPRONE
     Dosage: 160 MILLIGRAM, QD
     Route: 048
     Dates: start: 2020, end: 2020
  2. FERRIPROX [Suspect]
     Active Substance: DEFERIPRONE
     Dosage: 10 MILLIGRAM, QD
     Route: 048
     Dates: start: 2020, end: 2020
  3. LANTUS [Concomitant]
     Active Substance: INSULIN GLARGINE
     Indication: PRODUCT USED FOR UNKNOWN INDICATION
     Dosage: 3 MILLILITER, QD
     Route: 058
  4. VERAPAMIL [Concomitant]
     Active Substance: VERAPAMIL HYDROCHLORIDE
     Indication: PRODUCT USED FOR UNKNOWN INDICATION
     Dosage: 120 MILLIGRAM, QD
     Route: 065
  5. FERRIPROX [Suspect]
     Active Substance: DEFERIPRONE
     Dosage: 11 MILLIGRAM/KILOGRAM, BID
     Route: 048
     Dates: start: 20181031
  6. FERRIPROX [Suspect]
     Active Substance: DEFERIPRONE
     Dosage: 20 MILLIGRAM, QD
     Route: 048
     Dates: start: 2020, end: 2020
  7. LIPITOR [Concomitant]
     Active Substance: ATORVASTATIN CALCIUM
     Indication: PRODUCT USED FOR UNKNOWN INDICATION
     Dosage: 40 MILLIGRAM, QD
     Route: 065
  8. HUMALOG [Concomitant]
     Active Substance: INSULIN LISPRO
     Indication: PRODUCT USED FOR UNKNOWN INDICATION
     Dosage: 15 INTERNATIONAL UNIT, TID
     Route: 058
  9. FERRIPROX [Suspect]
     Active Substance: DEFERIPRONE
     Dosage: 11 MILLIGRAM/KILOGRAM, BID
     Route: 048
     Dates: start: 202011
  10. FERRIPROX [Suspect]
     Active Substance: DEFERIPRONE
     Dosage: 320 MILLIGRAM, QD
     Route: 048
     Dates: start: 2020, end: 2020
  11. FERRIPROX [Suspect]
     Active Substance: DEFERIPRONE
     Dosage: 80 MILLIGRAM, QD
     Route: 048
     Dates: start: 2020, end: 2020
  12. FERRIPROX [Suspect]
     Active Substance: DEFERIPRONE
     Dosage: 6 MILLIGRAM/KILOGRAM, QD, 5 DAYS/WEEK
     Route: 048
     Dates: start: 20200922
  13. FERRIPROX [Suspect]
     Active Substance: DEFERIPRONE
     Dosage: 40 MILLIGRAM, QD
     Route: 048
     Dates: start: 2020, end: 2020
  14. METFORMIN [Concomitant]
     Active Substance: METFORMIN HYDROCHLORIDE
     Indication: PRODUCT USED FOR UNKNOWN INDICATION
     Dosage: 1000 MILLIGRAM, BID
     Route: 048
  15. FERRIPROX [Suspect]
     Active Substance: DEFERIPRONE
     Indication: SUPERFICIAL SIDEROSIS OF CENTRAL NERVOUS SYSTEM
     Dosage: 11 MILLIGRAM/KILOGRAM, BID
     Route: 048
     Dates: start: 201911, end: 201912
  16. LEVITRA [Concomitant]
     Active Substance: VARDENAFIL HYDROCHLORIDE
     Indication: PRODUCT USED FOR UNKNOWN INDICATION
     Dosage: 20 MILLIGRAM, PRN
     Route: 065

REACTIONS (2)
  - White blood cell count decreased [Recovered/Resolved]
  - Agranulocytosis [Recovered/Resolved]

NARRATIVE: CASE EVENT DATE: 20191109
